FAERS Safety Report 18118364 (Version 1)
Quarter: 2020Q3

REPORT INFORMATION
  Report Type: Spontaneous
  Country: US (occurrence: US)
  Receive Date: 20200806
  Receipt Date: 20200806
  Transmission Date: 20201103
  Serious: Yes (Other)
  Sender: FDA-Public Use
  Company Number: US-MYLANLABS-2020M1069827

PATIENT
  Age: 43 Year
  Sex: Female

DRUGS (5)
  1. MUPIROCIN. [Concomitant]
     Active Substance: MUPIROCIN
     Indication: CHRONIC GRANULOMATOUS DISEASE
     Dosage: AS NEEDED
     Route: 061
  2. COLCHICINE. [Suspect]
     Active Substance: COLCHICINE
     Indication: BEHCET^S SYNDROME
     Route: 065
  3. CEFIXIME. [Concomitant]
     Active Substance: CEFIXIME
     Indication: CHRONIC GRANULOMATOUS DISEASE
     Dosage: 400 MILLIGRAM, QD
     Route: 065
  4. INTERFERON GAMMA?1B [Concomitant]
     Active Substance: INTERFERON GAMMA-1B
     Indication: CHRONIC GRANULOMATOUS DISEASE
     Dosage: 100MCG/0.5ML EVERY OTHER DAY
     Route: 058
  5. TRIMETHOPRIM. [Concomitant]
     Active Substance: TRIMETHOPRIM
     Indication: CHRONIC GRANULOMATOUS DISEASE
     Dosage: 100 MILLIGRAM, TID, 2TABS IN AM AND 1 TAB IN PM
     Route: 065

REACTIONS (2)
  - Off label use [Unknown]
  - Drug ineffective for unapproved indication [Unknown]
